FAERS Safety Report 24107415 (Version 1)
Quarter: 2024Q3

REPORT INFORMATION
  Report Type: Spontaneous
  Country: US (occurrence: US)
  Receive Date: 20240718
  Receipt Date: 20240718
  Transmission Date: 20241017
  Serious: No
  Sender: NOVARTIS
  Company Number: US-002147023-NVSC2024US147553

PATIENT

DRUGS (1)
  1. LEQVIO [Suspect]
     Active Substance: INCLISIRAN SODIUM
     Indication: Low density lipoprotein increased
     Dosage: 284 MG (STARTING DOSE REGIMEN THEN Q6 MONTHS)
     Route: 058

REACTIONS (3)
  - Headache [Unknown]
  - Pruritus [Unknown]
  - Myalgia [Unknown]
